FAERS Safety Report 20091862 (Version 2)
Quarter: 2022Q1

REPORT INFORMATION
  Report Type: Spontaneous
  Country: CH (occurrence: CH)
  Receive Date: 20211119
  Receipt Date: 20220131
  Transmission Date: 20220423
  Serious: Yes (Other)
  Sender: FDA-Public Use
  Company Number: CH-BRISTOL-MYERS SQUIBB COMPANY-BMS-2021-110470

PATIENT
  Sex: Female

DRUGS (2)
  1. OPDIVO [Suspect]
     Active Substance: NIVOLUMAB
     Indication: Metastatic squamous cell carcinoma
     Dosage: UNK
     Route: 065
     Dates: start: 202105
  2. YERVOY [Suspect]
     Active Substance: IPILIMUMAB
     Indication: Metastatic squamous cell carcinoma
     Dosage: UNK
     Route: 065
     Dates: start: 202105

REACTIONS (3)
  - Immune-mediated hepatic disorder [Unknown]
  - Colitis [Unknown]
  - Intentional product use issue [Unknown]
